FAERS Safety Report 5788522-2 (Version None)
Quarter: 2008Q2

REPORT INFORMATION
  Report Type: 
  Country: None (occurrence: None)
  Receive Date: 20080618
  Receipt Date: 20080116
  Transmission Date: 20081010
  Serious: Yes (Hospitalization)
  Sender: FDA-Public Use
  Company Number: 200810343US

PATIENT
  Age: 80 Year
  Sex: Female

DRUGS (7)
  1. LANTUS [Suspect]
     Indication: TYPE 2 DIABETES MELLITUS
     Dosage: 52 U
  2. OPTICLIK [Suspect]
     Indication: TYPE 2 DIABETES MELLITUS
  3. STARLIX [Concomitant]
  4. ESTROGENS CONJUGATED (PREMARIN /00073001/) [Concomitant]
  5. SIMVASTATIN EZETIMIBE, (VYTORIN) [Concomitant]
  6. EZETIMIBE (VYTORIN) [Concomitant]
  7. VALSARTAN (DIOVANE) [Concomitant]

REACTIONS (1)
  - HYPERGLYCAEMIA [None]
